FAERS Safety Report 4751496-7 (Version None)
Quarter: 2005Q3

REPORT INFORMATION
  Report Type: 
  Country: None (occurrence: None)
  Receive Date: 20050824
  Receipt Date: 20050819
  Transmission Date: 20060218
  Serious: Yes (Death)
  Sender: FDA-Public Use
  Company Number: 2005AP04464

PATIENT
  Weight: 51 kg

DRUGS (1)
  1. MEROPENEM [Suspect]

REACTIONS (1)
  - HAEMOLYTIC ANAEMIA [None]
